FAERS Safety Report 8682316 (Version 2)
Quarter: 2012Q4

REPORT INFORMATION
  Report Type: 
  Country: US (occurrence: US)
  Receive Date: 20120725
  Receipt Date: 20121115
  Transmission Date: 20130627
  Serious: Yes (Hospitalization, Other)
  Sender: FDA-Public Use
  Company Number: US-BAYER-2012-073272

PATIENT
  Age: 26 Year
  Sex: Female
  Weight: 100 kg

DRUGS (25)
  1. OCELLA [Suspect]
     Indication: PREMENSTRUAL SYNDROME
     Dosage: UNK
     Dates: start: 20090320, end: 2010
  2. OCELLA [Suspect]
     Indication: ACNE
  3. ALBUTEROL [Concomitant]
     Dosage: UNK
     Dates: start: 2004
  4. DOXYCYCLINE [Concomitant]
     Dosage: UNK
     Dates: start: 2004
  5. NAPROSYN [Concomitant]
     Dosage: UNK
     Dates: start: 2004
  6. ASTHMA MEDICATIONS [Concomitant]
     Dosage: UNK
     Dates: start: 1985
  7. ANTIBIOTICS [Concomitant]
     Dosage: UNK
     Dates: start: 1996
  8. ATTENTION DEFICIT MEDICATIONS/ ADHD MEDICATION [Concomitant]
     Dosage: UNK
     Dates: start: 2002
  9. AMPHETAMINE SALTS [Concomitant]
  10. STEROIDS [Concomitant]
  11. MORPHINE [Concomitant]
     Dosage: UNK
     Dates: start: 2009, end: 2011
  12. HYDROCODONE W/APAP [Concomitant]
     Dosage: 5 mg/325 mg;take 1 to 2 tablets every 4 hours
     Route: 048
     Dates: start: 2009
  13. PERCOCET [Concomitant]
     Dosage: UNK
     Dates: start: 2009
  14. METHYLPREDNISOLONE [Concomitant]
     Dosage: 4 mg dose pack 21^s
  15. ADVAIR DISKUS [Concomitant]
     Dosage: 1 puff(s), UNK
     Route: 045
  16. INTAL [Concomitant]
     Dosage: 2 puff(s), UNK
     Route: 045
  17. PROVENTIL HFA [Concomitant]
     Dosage: 2 puff(s), UNK
     Route: 045
  18. TRAMADOL [Concomitant]
     Dosage: 50 mg, every 4 hours as needed
     Route: 048
  19. OXYCODONE/APAP [Concomitant]
     Dosage: 5mg/325 mg; one tablet three times daily as needed
     Route: 048
  20. NAPROXEN [Concomitant]
     Dosage: 500 mg, BID with food
     Route: 048
  21. IBUPROFEN [Concomitant]
     Dosage: 800 mg, TID
     Route: 048
  22. AMITRIPTYLINE [Concomitant]
     Dosage: 10 mg; take 4 tablets every night at bed time, 25 mg; take 1 tablet every night at bedtime.
     Route: 048
  23. DILAUDID [Concomitant]
  24. ZOFRAN [Concomitant]
  25. VICODIN [Concomitant]

REACTIONS (11)
  - Gallbladder injury [None]
  - Deep vein thrombosis [None]
  - Cholecystitis chronic [None]
  - Injury [None]
  - Pain [None]
  - Emotional distress [None]
  - Pain [None]
  - General physical health deterioration [None]
  - Anxiety [None]
  - Scar [None]
  - Mental disorder [None]
